FAERS Safety Report 8022004-2 (Version None)
Quarter: 2012Q1

REPORT INFORMATION
  Report Type: 
  Country: None (occurrence: None)
  Receive Date: 20120104
  Receipt Date: 20111230
  Transmission Date: 20120608
  Serious: No
  Sender: FDA-Public Use
  Company Number: US-BAYER-2012-000736

PATIENT
  Age: 43 Year
  Sex: Male
  Weight: 93.878 kg

DRUGS (3)
  1. TRAMADOL HCL [Concomitant]
  2. IBUPROFEN [Concomitant]
  3. ULTRAVIST 150 [Suspect]
     Indication: COMPUTERISED TOMOGRAM
     Dosage: 80 ML, ONCE, POWER INJECTOR INTO RIGHT AC #20G WITH WARMER @37.5 C
     Route: 042
     Dates: start: 20111230, end: 20111230

REACTIONS (2)
  - PRURITUS [None]
  - URTICARIA [None]
